FAERS Safety Report 10569207 (Version 1)
Quarter: 2014Q4

REPORT INFORMATION
  Report Type: Spontaneous
  Country: US (occurrence: US)
  Receive Date: 20141106
  Receipt Date: 20141106
  Transmission Date: 20150529
  Serious: Yes (Other)
  Sender: FDA-Public Use
  Company Number: US-TEVA-520303USA

PATIENT
  Sex: Female

DRUGS (1)
  1. DULOXETINE [Suspect]
     Active Substance: DULOXETINE
     Indication: PAIN MANAGEMENT
     Route: 065
     Dates: start: 20141002

REACTIONS (11)
  - Feeling of despair [Unknown]
  - Fatigue [Unknown]
  - Headache [Unknown]
  - Depressive symptom [Unknown]
  - Drug ineffective [Unknown]
  - Pain [Unknown]
  - Product substitution issue [Unknown]
  - Cardiac disorder [Unknown]
  - Dizziness [Unknown]
  - Coronary artery occlusion [Unknown]
  - Crying [Unknown]
